FAERS Safety Report 17362213 (Version 1)
Quarter: 2020Q1

REPORT INFORMATION
  Report Type: Spontaneous
  Country: US (occurrence: US)
  Receive Date: 20200201
  Receipt Date: 20200201
  Transmission Date: 20200409
  Serious: Yes (Other)
  Sender: FDA-Public Use
  Company Number: None

PATIENT
  Age: 15 Year
  Sex: Female
  Weight: 81 kg

DRUGS (1)
  1. PANOXYL [Suspect]
     Active Substance: BENZOYL PEROXIDE
     Indication: ACNE
     Route: 061
     Dates: start: 20191120, end: 20200131

REACTIONS (1)
  - Eye swelling [None]

NARRATIVE: CASE EVENT DATE: 20191120
